FAERS Safety Report 10649941 (Version 2)
Quarter: 2017Q3

REPORT INFORMATION
  Report Type: Report from Study
  Country: CA (occurrence: CA)
  Receive Date: 20141212
  Receipt Date: 20170808
  Transmission Date: 20171127
  Serious: Yes (Death, Other)
  Sender: FDA-Public Use
  Company Number: CA-009507513-1412CAN002857

PATIENT
  Age: 79 Year
  Sex: Male
  Weight: 55 kg

DRUGS (1)
  1. IVERMECTIN. [Suspect]
     Active Substance: IVERMECTIN
     Indication: ACARODERMATITIS
     Dosage: 200 MICROGRAM PER KILOGRAM ONCE; REPEAT 7X; 4 X 3 MG; DAY:1,2,8,9,15,22,29
     Route: 048

REACTIONS (6)
  - Klebsiella bacteraemia [Unknown]
  - Blood creatinine abnormal [Unknown]
  - Red blood cells urine positive [Unknown]
  - Urine analysis abnormal [Unknown]
  - Death [Fatal]
  - White blood cells urine [Unknown]

NARRATIVE: CASE EVENT DATE: 2014
